FAERS Safety Report 10959411 (Version 1)
Quarter: 2015Q1

REPORT INFORMATION
  Report Type: Spontaneous
  Country: FR (occurrence: FR)
  Receive Date: 20150327
  Receipt Date: 20150327
  Transmission Date: 20150721
  Serious: Yes (Death, Life-Threatening, Hospitalization)
  Sender: FDA-Public Use
  Company Number: FR-ROCHE-1556752

PATIENT
  Age: 93 Year
  Sex: Male

DRUGS (12)
  1. PAROXETINE [Concomitant]
     Active Substance: PAROXETINE\PAROXETINE HYDROCHLORIDE
     Route: 065
     Dates: start: 2013
  2. DAFALGAN [Concomitant]
     Active Substance: ACETAMINOPHEN
     Dosage: PRN
     Route: 065
     Dates: start: 201501
  3. AMOXICILLIN/CLAVULANIC ACID [Concomitant]
     Active Substance: AMOXICILLIN\CLAVULANIC ACID
     Route: 048
     Dates: start: 20150224, end: 20150225
  4. PRAVASTATIN [Concomitant]
     Active Substance: PRAVASTATIN\PRAVASTATIN SODIUM
     Route: 065
     Dates: start: 2013
  5. SOLU-MEDROL [Concomitant]
     Active Substance: METHYLPREDNISOLONE SODIUM SUCCINATE
     Route: 065
  6. AMOXICILLIN/CLAVULANIC ACID [Concomitant]
     Active Substance: AMOXICILLIN\CLAVULANIC ACID
     Route: 042
     Dates: start: 20150220, end: 20150223
  7. TAMIFLU [Suspect]
     Active Substance: OSELTAMIVIR PHOSPHATE
     Indication: INFLUENZA
     Route: 048
     Dates: start: 20150219, end: 20150224
  8. LASILIX [Concomitant]
     Active Substance: FUROSEMIDE
     Route: 065
     Dates: start: 2013
  9. KAYEXALATE [Concomitant]
     Active Substance: SODIUM POLYSTYRENE SULFONATE
     Dosage: 2 MEASURE-SPOONS
     Route: 065
     Dates: start: 2013
  10. OXYGEN. [Concomitant]
     Active Substance: OXYGEN
     Dosage: UPTO 3 L
     Route: 065
  11. DEDROGYL [Concomitant]
     Active Substance: CALCIFEDIOL
     Dosage: 2 DROPS
     Route: 065
     Dates: start: 2012
  12. ZYLORIC [Concomitant]
     Active Substance: ALLOPURINOL
     Route: 065
     Dates: start: 2013

REACTIONS (1)
  - Neurological decompensation [Fatal]

NARRATIVE: CASE EVENT DATE: 20150226
